FAERS Safety Report 16153644 (Version 1)
Quarter: 2019Q2

REPORT INFORMATION
  Report Type: Spontaneous
  Country: PT (occurrence: PT)
  Receive Date: 20190403
  Receipt Date: 20190403
  Transmission Date: 20190711
  Serious: Yes (Death, Life-Threatening)
  Sender: FDA-Public Use
  Company Number: PT-ACCORD-116976

PATIENT
  Age: 77 Year
  Sex: Female
  Weight: 50 kg

DRUGS (11)
  1. EPTIFIBATIDE ACCORD [Suspect]
     Active Substance: EPTIFIBATIDE
     Indication: PLATELET AGGREGATION INHIBITION
     Dosage: BOLUS 180 MICROGRAMS / KG FOLLOWED BY CONTINUOUS INFUSION OF 2.0?MICROGRAM / KG / MIN
     Route: 042
     Dates: start: 20190107, end: 20190107
  2. AMIODARONE [Concomitant]
     Active Substance: AMIODARONE
  3. ISOSORBIDE. [Concomitant]
     Active Substance: ISOSORBIDE
  4. ATORVASTATIN [Concomitant]
     Active Substance: ATORVASTATIN
  5. TICAGRELOR. [Concomitant]
     Active Substance: TICAGRELOR
  6. SPIRONOLACTONE. [Concomitant]
     Active Substance: SPIRONOLACTONE
  7. RAMIPRIL. [Concomitant]
     Active Substance: RAMIPRIL
  8. FUROSEMIDE. [Concomitant]
     Active Substance: FUROSEMIDE
  9. POTASSIUM CHLORIDE. [Concomitant]
     Active Substance: POTASSIUM CHLORIDE
  10. ACETYLSALICYLIC ACID [Concomitant]
     Active Substance: ASPIRIN
  11. CARVEDILOL/CARVEDILOL HYDROCHLODRIDE [Concomitant]

REACTIONS (1)
  - Anaphylactic reaction [Fatal]

NARRATIVE: CASE EVENT DATE: 20190107
